FAERS Safety Report 9803588 (Version 1)
Quarter: 2014Q1

REPORT INFORMATION
  Report Type: Spontaneous
  Country: US (occurrence: US)
  Receive Date: 20140108
  Receipt Date: 20140108
  Transmission Date: 20141002
  Serious: No
  Sender: FDA-Public Use
  Company Number: US-GLAXOSMITHKLINE-A1010388A

PATIENT
  Age: 73 Year
  Sex: Female

DRUGS (9)
  1. LOVAZA [Suspect]
     Indication: BLOOD TRIGLYCERIDES INCREASED
     Dosage: 2CAP TWICE PER DAY
     Route: 048
     Dates: start: 201202
  2. DIOVAN [Concomitant]
  3. METOPROLOL [Concomitant]
  4. CRESTOR [Concomitant]
  5. FLUTICASONE NASAL SPRAY [Concomitant]
  6. BABY ASPIRIN [Concomitant]
  7. MVI [Concomitant]
  8. ALLEGRA [Concomitant]
  9. REMICADE [Concomitant]

REACTIONS (3)
  - Oral pain [Not Recovered/Not Resolved]
  - Oral discomfort [Unknown]
  - Product quality issue [Unknown]
